FAERS Safety Report 13111046 (Version 1)
Quarter: 2017Q1

REPORT INFORMATION
  Report Type: Spontaneous
  Country: IN (occurrence: IN)
  Receive Date: 20170112
  Receipt Date: 20170112
  Transmission Date: 20170428
  Serious: Yes (Other)
  Sender: FDA-Public Use
  Company Number: ALCN2017IN000500

PATIENT
  Age: 22 Year
  Sex: Male

DRUGS (7)
  1. CROMOLYN SODIUM. [Concomitant]
     Active Substance: CROMOLYN SODIUM
     Indication: ATOPIC KERATOCONJUNCTIVITIS
     Dosage: UNK
     Route: 047
  2. NAPHAZOLINE HCL [Suspect]
     Active Substance: NAPHAZOLINE\NAPHAZOLINE HYDROCHLORIDE
     Indication: ATOPIC KERATOCONJUNCTIVITIS
     Dosage: UNK
     Route: 047
  3. PREDNISOLONE. [Suspect]
     Active Substance: PREDNISOLONE
     Dosage: 5 MG, QD
     Route: 048
  4. CARBOXYMETHYLCELLULOSE SODIUM. [Concomitant]
     Active Substance: CARBOXYMETHYLCELLULOSE SODIUM
     Indication: ATOPIC KERATOCONJUNCTIVITIS
     Dosage: UNK
     Route: 047
  5. ASTEMIZOLE [Concomitant]
     Active Substance: ASTEMIZOLE
     Indication: ATOPIC KERATOCONJUNCTIVITIS
     Dosage: 10 MG, QD
     Route: 048
  6. METHOTREXATE. [Concomitant]
     Active Substance: METHOTREXATE
     Indication: ATOPIC KERATOCONJUNCTIVITIS
     Dosage: 7.5 MG, QW
     Route: 048
     Dates: start: 2003
  7. PREDNISOLONE. [Suspect]
     Active Substance: PREDNISOLONE
     Indication: ATOPIC KERATOCONJUNCTIVITIS
     Dosage: 40 MG, QD
     Route: 048
     Dates: start: 2003

REACTIONS (3)
  - Intraocular pressure increased [Recovered/Resolved]
  - Cataract subcapsular [Recovered/Resolved]
  - Drug ineffective [Unknown]

NARRATIVE: CASE EVENT DATE: 1994
